FAERS Safety Report 17152051 (Version 1)
Quarter: 2019Q4

REPORT INFORMATION
  Report Type: Spontaneous
  Country: DE (occurrence: DE)
  Receive Date: 20191213
  Receipt Date: 20191213
  Transmission Date: 20200122
  Serious: Yes (Life-Threatening)
  Sender: FDA-Public Use
  Company Number: DE-MYLANLABS-2019M1122386

PATIENT
  Sex: Female
  Weight: 34 kg

DRUGS (1)
  1. FLUTICASONE PROPIONATE/SALMETEROL XINAFOATE [Suspect]
     Active Substance: FLUTICASONE PROPIONATE\SALMETEROL XINAFOATE
     Indication: ASTHMA
     Dosage: 2 DF, QD (50/250 2 X 1 DOSE/DAY)
     Route: 065

REACTIONS (4)
  - Dyspnoea [Unknown]
  - Blood immunoglobulin E increased [Unknown]
  - Conjunctivitis allergic [Unknown]
  - Asthma [Recovering/Resolving]

NARRATIVE: CASE EVENT DATE: 2007
